FAERS Safety Report 10783107 (Version 2)
Quarter: 2015Q1

REPORT INFORMATION
  Report Type: Spontaneous
  Country: SE (occurrence: SE)
  Receive Date: 20150210
  Receipt Date: 20150218
  Transmission Date: 20150721
  Serious: Yes (Hospitalization, Other)
  Sender: FDA-Public Use
  Company Number: SE-PFIZER INC-SEWYE461415DEC03

PATIENT
  Age: 29 Year
  Sex: Female

DRUGS (3)
  1. ETHINYLESTRADIOL/LEVONORGESTREL [Suspect]
     Active Substance: ETHINYL ESTRADIOL\LEVONORGESTREL
     Indication: ORAL CONTRACEPTION
     Dosage: 1 DF, 1X/DAY
     Route: 048
     Dates: start: 20030728, end: 20030805
  2. NORGESTREL [Suspect]
     Active Substance: NORGESTREL
     Indication: ORAL CONTRACEPTION
     Dosage: 1 DF, 1X/DAY
     Route: 048
     Dates: start: 200303, end: 200304
  3. CERAZETTE [Suspect]
     Active Substance: DESOGESTREL
     Indication: ORAL CONTRACEPTION
     Dosage: 1 DF, 1X/DAY
     Route: 048
     Dates: start: 200304, end: 20030727

REACTIONS (9)
  - Nausea [Recovered/Resolved]
  - Anaphylactic reaction [Unknown]
  - Thrombotic thrombocytopenic purpura [Not Recovered/Not Resolved]
  - Thrombocytopenia [Recovered/Resolved]
  - Haemolysis [Recovered/Resolved]
  - Blood creatinine increased [Recovered/Resolved]
  - Vomiting [Recovered/Resolved]
  - Thrombotic microangiopathy [Not Recovered/Not Resolved]
  - Pyrexia [Recovered/Resolved]

NARRATIVE: CASE EVENT DATE: 200308
